FAERS Safety Report 9640714 (Version 2)
Quarter: 2013Q4

REPORT INFORMATION
  Report Type: Report from Study
  Country: US (occurrence: US)
  Receive Date: 20131023
  Receipt Date: 20131023
  Transmission Date: 20140711
  Serious: No
  Sender: FDA-Public Use
  Company Number: US-ABBVIE-13P-163-1037763-00

PATIENT
  Age: 30 Year
  Sex: Female
  Weight: 68.1 kg

DRUGS (3)
  1. LUPRON DEPOT [Suspect]
     Indication: ENDOMETRIOSIS
     Route: 030
     Dates: start: 20130107
  2. LORATADINE [Concomitant]
     Indication: PRODUCT USED FOR UNKNOWN INDICATION
  3. NORETHINDRONE ACETATE [Concomitant]
     Indication: PRODUCT USED FOR UNKNOWN INDICATION

REACTIONS (8)
  - Crying [Not Recovered/Not Resolved]
  - Dizziness [Recovering/Resolving]
  - Nausea [Recovering/Resolving]
  - Hot flush [Recovering/Resolving]
  - Depressed mood [Not Recovered/Not Resolved]
  - Feeling abnormal [Not Recovered/Not Resolved]
  - Depressed mood [Not Recovered/Not Resolved]
  - Apathy [Not Recovered/Not Resolved]
